FAERS Safety Report 25317133 (Version 4)
Quarter: 2025Q3

REPORT INFORMATION
  Report Type: Report from Study
  Country: US (occurrence: US)
  Receive Date: 20250515
  Receipt Date: 20250716
  Transmission Date: 20251020
  Serious: No
  Sender: SUNOVION
  Company Number: US-SUMITOMO PHARMA SWITZERLAND GMBH-2025SPA004909

PATIENT

DRUGS (2)
  1. ORGOVYX [Suspect]
     Active Substance: RELUGOLIX
     Indication: Prostate cancer
     Route: 048
     Dates: start: 20250201, end: 20250201
  2. ORGOVYX [Suspect]
     Active Substance: RELUGOLIX
     Dosage: 120 MG, QD
     Route: 048
     Dates: start: 20250202

REACTIONS (19)
  - Neuropathy peripheral [Unknown]
  - Muscle spasms [Unknown]
  - Dysuria [Unknown]
  - Proctalgia [Unknown]
  - Neuralgia [Unknown]
  - Urinary hesitation [Unknown]
  - Confusional state [Unknown]
  - Mood altered [Unknown]
  - Dyspnoea [Unknown]
  - Fluid retention [Unknown]
  - Abdominal distension [Unknown]
  - Disturbance in attention [Unknown]
  - Tachyphrenia [Unknown]
  - Dizziness [Unknown]
  - Depression [Unknown]
  - Insomnia [Unknown]
  - Weight increased [Unknown]
  - Fatigue [Unknown]
  - Asthenia [Unknown]
